FAERS Safety Report 18595760 (Version 4)
Quarter: 2021Q4

REPORT INFORMATION
  Report Type: Spontaneous
  Country: CA (occurrence: CA)
  Receive Date: 20201209
  Receipt Date: 20211228
  Transmission Date: 20220303
  Serious: Yes (Other)
  Sender: FDA-Public Use
  Company Number: CA-SAMSUNG BIOEPIS-SB-2020-36372

PATIENT
  Age: 61 Year
  Sex: Male
  Weight: 94 kg

DRUGS (27)
  1. INFLIXIMAB [Suspect]
     Active Substance: INFLIXIMAB
     Indication: Colitis ulcerative
     Route: 042
  2. ACETAMINOPHEN [Concomitant]
     Active Substance: ACETAMINOPHEN
     Indication: Premedication
     Route: 065
  3. ASPIRIN [Concomitant]
     Active Substance: ASPIRIN
     Indication: Product used for unknown indication
     Dosage: UNKNOWN
     Route: 065
  4. ASPIRIN [Concomitant]
     Active Substance: ASPIRIN
     Route: 065
  5. ASPIRIN [Concomitant]
     Active Substance: ASPIRIN
     Route: 065
  6. ASPIRIN [Concomitant]
     Active Substance: ASPIRIN
     Indication: Product used for unknown indication
     Dosage: UNKNOWN
     Route: 065
  7. ATORVASTATIN CALCIUM [Concomitant]
     Active Substance: ATORVASTATIN CALCIUM
     Indication: Product used for unknown indication
     Dosage: UNKNOWN
     Route: 065
  8. ATORVASTATIN CALCIUM [Concomitant]
     Active Substance: ATORVASTATIN CALCIUM
     Route: 065
  9. AZATHIOPRINE [Concomitant]
     Active Substance: AZATHIOPRINE
     Indication: Product used for unknown indication
     Dosage: UNKNOWN
     Route: 065
  10. AZATHIOPRINE [Concomitant]
     Active Substance: AZATHIOPRINE
     Route: 065
  11. AZATHIOPRINE [Concomitant]
     Active Substance: AZATHIOPRINE
     Route: 065
  12. DESOXIMETASONE [Concomitant]
     Active Substance: DESOXIMETASONE
     Indication: Product used for unknown indication
     Dosage: UNKNOWN
     Route: 065
  13. DESOXIMETASONE [Concomitant]
     Active Substance: DESOXIMETASONE
     Route: 065
  14. DIPHENHYDRAMINE [Concomitant]
     Active Substance: DIPHENHYDRAMINE
     Indication: Premedication
     Route: 065
  15. HYDROCORTISONE [Concomitant]
     Active Substance: HYDROCORTISONE
     Indication: Premedication
     Route: 065
  16. LANSOPRAZOLE [Concomitant]
     Active Substance: LANSOPRAZOLE
     Indication: Product used for unknown indication
     Dosage: UNKNOWN, CAPSULE, DELAYED RELEASE
     Route: 065
  17. LANSOPRAZOLE [Concomitant]
     Active Substance: LANSOPRAZOLE
     Dosage: CAPSULE DELAYED RELEASE
     Route: 065
  18. MESALAMINE [Concomitant]
     Active Substance: MESALAMINE
     Indication: Product used for unknown indication
     Dosage: UNKNOWN. TABLET (DELAYED AND EXTENDED RELEASE)
     Route: 065
  19. MESALAMINE [Concomitant]
     Active Substance: MESALAMINE
     Dosage: TABLET (DELAYED AND EXTENDED RELEASE)
     Route: 065
  20. MESALAMINE [Concomitant]
     Active Substance: MESALAMINE
     Route: 065
  21. PARA-AMINOSALICYLIC ACID [Concomitant]
     Active Substance: AMINOSALICYLIC ACID
     Indication: Product used for unknown indication
     Dosage: UNKNOWN
     Route: 065
  22. PARA-AMINOSALICYLIC ACID [Concomitant]
     Active Substance: AMINOSALICYLIC ACID
     Route: 065
  23. PREDNISONE [Concomitant]
     Active Substance: PREDNISONE
     Indication: Product used for unknown indication
     Dosage: UNKNOWN
     Route: 065
  24. PREDNISONE [Concomitant]
     Active Substance: PREDNISONE
     Route: 065
  25. PREDNISONE [Concomitant]
     Active Substance: PREDNISONE
     Route: 065
  26. ATORVASTATIN [Concomitant]
     Active Substance: ATORVASTATIN
     Indication: Product used for unknown indication
     Dosage: UNKNOWN
     Route: 065
  27. PERINDOPRIL ERBUMINE [Concomitant]
     Active Substance: PERINDOPRIL ERBUMINE
     Indication: Product used for unknown indication
     Dosage: UNKNOWN
     Route: 065

REACTIONS (22)
  - Blood parathyroid hormone abnormal [Recovered/Resolved]
  - Blood pressure increased [Recovered/Resolved]
  - Cardiac disorder [Recovered/Resolved]
  - Condition aggravated [Recovered/Resolved]
  - Dyspnoea exertional [Recovered/Resolved]
  - Erythema [Recovered/Resolved]
  - Gastroenteritis [Recovered/Resolved]
  - Hyperlipidaemia [Recovered/Resolved]
  - Hypertension [Recovered/Resolved]
  - Influenza [Recovered/Resolved]
  - Liver disorder [Recovered/Resolved]
  - Myocardial infarction [Recovered/Resolved]
  - Oropharyngeal discomfort [Recovered/Resolved]
  - Pyrexia [Recovered/Resolved]
  - Weight increased [Recovered/Resolved]
  - Hepatic mass [Recovered/Resolved]
  - Throat irritation [Recovered/Resolved]
  - Drug level below therapeutic [Recovered/Resolved]
  - Drug level increased [Recovered/Resolved]
  - Inappropriate schedule of product administration [Recovered/Resolved]
  - Intentional product use issue [Recovered/Resolved]
  - Off label use [Recovered/Resolved]
